FAERS Safety Report 13721802 (Version 2)
Quarter: 2018Q4

REPORT INFORMATION
  Report Type: Report from Study
  Country: US (occurrence: US)
  Receive Date: 20170706
  Receipt Date: 20181003
  Transmission Date: 20190204
  Serious: Yes (Hospitalization, Other)
  Sender: FDA-Public Use
  Company Number: US-ARIAD PHARMACEUTICALS, INC-2017US008484

PATIENT
  Sex: Female

DRUGS (3)
  1. PONATINIB [Suspect]
     Active Substance: PONATINIB
     Dosage: 15 MG, QD
     Route: 048
  2. PONATINIB [Suspect]
     Active Substance: PONATINIB
     Indication: CHRONIC MYELOID LEUKAEMIA
     Dosage: 30 MG, QD
     Route: 048
     Dates: start: 20150529
  3. TIZANIDINE HCL [Concomitant]
     Active Substance: TIZANIDINE HYDROCHLORIDE
     Dosage: UNK
     Route: 065

REACTIONS (18)
  - Hepatic encephalopathy [Unknown]
  - Haematocrit decreased [Unknown]
  - Iron deficiency [Unknown]
  - Diarrhoea [Unknown]
  - Vertigo [Unknown]
  - Pallor [Unknown]
  - Dehydration [Unknown]
  - Anxiety [Unknown]
  - Constipation [Unknown]
  - Anastomotic ulcer [Unknown]
  - Gait disturbance [Unknown]
  - Vitamin B12 deficiency [Unknown]
  - Limb girth decreased [Unknown]
  - Malnutrition [Unknown]
  - Oedema peripheral [Unknown]
  - Vomiting [Unknown]
  - Nausea [Unknown]
  - Hepatic enzyme increased [Unknown]
